FAERS Safety Report 17116125 (Version 1)
Quarter: 2019Q4

REPORT INFORMATION
  Report Type: Report from Study
  Country: CN (occurrence: CN)
  Receive Date: 20191205
  Receipt Date: 20191205
  Transmission Date: 20200122
  Serious: Yes (Hospitalization)
  Sender: FDA-Public Use
  Company Number: CN-TAKEDA-2019TUS057853

PATIENT
  Age: 32 Year
  Sex: Male
  Weight: 62 kg

DRUGS (8)
  1. GLUTAMIN                           /00082702/ [Concomitant]
     Indication: GASTROINTESTINAL MUCOSAL DISORDER
     Dosage: UNK UNK, TID
     Route: 048
     Dates: start: 20181017, end: 20181031
  2. PANTOPRAZOLE SODIUM. [Concomitant]
     Active Substance: PANTOPRAZOLE SODIUM
     Dosage: UNK UNK, QD
     Route: 048
     Dates: start: 20190702
  3. CALCIUM [Concomitant]
     Active Substance: CALCIUM
     Indication: OSTEOPOROSIS
     Dosage: UNK UNK, QD
     Route: 048
     Dates: start: 20190715
  4. VEDOLIZUMAB [Suspect]
     Active Substance: VEDOLIZUMAB
     Indication: CROHN^S DISEASE
     Dosage: UNK
     Route: 042
     Dates: start: 20181109
  5. GLUTAMIN                           /00082702/ [Concomitant]
     Dosage: UNK UNK, TID
     Route: 048
     Dates: start: 20190702
  6. PANTOPRAZOLE SODIUM. [Concomitant]
     Active Substance: PANTOPRAZOLE SODIUM
     Indication: GASTROINTESTINAL DISORDER
     Dosage: 40 MILLIGRAM, QD
     Route: 042
     Dates: start: 20181002, end: 20181006
  7. VITAMIN D NOS [Concomitant]
     Active Substance: VITAMIN D NOS
     Indication: OSTEOPOROSIS
     Dosage: UNK UNK, QD
     Route: 048
     Dates: start: 20190715
  8. GLUTAMIN                           /00082702/ [Concomitant]
     Dosage: UNK UNK, TID
     Route: 048
     Dates: start: 20181101, end: 20190120

REACTIONS (1)
  - Crohn^s disease [Recovering/Resolving]

NARRATIVE: CASE EVENT DATE: 20190924
